APPROVED DRUG PRODUCT: LORATADINE
Active Ingredient: LORATADINE
Strength: 10MG
Dosage Form/Route: TABLET, ORALLY DISINTEGRATING;ORAL
Application: A076011 | Product #001
Applicant: PERRIGO PHARMA INTERNATIONAL DAC
Approved: Sep 29, 2003 | RLD: No | RS: No | Type: OTC